FAERS Safety Report 5454901-6 (Version None)
Quarter: 2007Q3

REPORT INFORMATION
  Report Type: 
  Country: None (occurrence: None)
  Receive Date: 20070917
  Receipt Date: 20070228
  Transmission Date: 20080115
  Serious: Yes (Other)
  Sender: FDA-Public Use
  Company Number: US-ASTRAZENECA-2006UW20839

PATIENT
  Age: 501 Month
  Sex: Female
  Weight: 86.4 kg

DRUGS (4)
  1. SEROQUEL [Suspect]
     Indication: DEPRESSION
     Route: 048
     Dates: start: 20031201, end: 20040701
  2. GEODON [Concomitant]
     Dates: start: 20050801
  3. RISPERDAL [Concomitant]
     Dates: start: 20060901
  4. ZYPREXA [Concomitant]
     Dates: end: 20040201

REACTIONS (2)
  - DIABETES MELLITUS [None]
  - SUICIDAL IDEATION [None]
